FAERS Safety Report 16128052 (Version 1)
Quarter: 2019Q1

REPORT INFORMATION
  Report Type: Spontaneous
  Country: BR (occurrence: BR)
  Receive Date: 20190328
  Receipt Date: 20190328
  Transmission Date: 20190418
  Serious: Yes (Other)
  Sender: FDA-Public Use
  Company Number: BR-TERSERA THERAPEUTICS LLC-TSR2018001526

PATIENT

DRUGS (2)
  1. ZOLADEX [Suspect]
     Active Substance: GOSERELIN ACETATE
     Indication: PROSTATE CANCER
     Dosage: 10.8 MG, EVERY THREE MONTHS
     Route: 058
     Dates: start: 2016
  2. BICALUTAMIDE. [Suspect]
     Active Substance: BICALUTAMIDE
     Indication: PROSTATE CANCER
     Dosage: UNK, BID
     Route: 048
     Dates: start: 2019, end: 2019

REACTIONS (9)
  - Urinary tract infection [Recovered/Resolved]
  - Malignant neoplasm progression [Unknown]
  - Arthralgia [Not Recovered/Not Resolved]
  - Tooth loss [Recovered/Resolved]
  - Off label use [Recovered/Resolved]
  - Limb injury [Not Recovered/Not Resolved]
  - Gait disturbance [Not Recovered/Not Resolved]
  - Urinary incontinence [Not Recovered/Not Resolved]
  - Hot flush [Not Recovered/Not Resolved]

NARRATIVE: CASE EVENT DATE: 2016
